FAERS Safety Report 8987311 (Version 1)
Quarter: 2012Q4

REPORT INFORMATION
  Report Type: 
  Country: IT (occurrence: IT)
  Receive Date: 20121226
  Receipt Date: 20121226
  Transmission Date: 20130627
  Serious: Yes (Hospitalization)
  Sender: FDA-Public Use
  Company Number: IT-ROCHE-1173827

PATIENT
  Sex: Female

DRUGS (1)
  1. ROCEFIN [Suspect]
     Indication: BRONCHITIS
     Route: 030
     Dates: start: 20121203, end: 20121203

REACTIONS (3)
  - Diarrhoea [Unknown]
  - Dyspnoea [Unknown]
  - Pruritus [Unknown]
